FAERS Safety Report 7892602-5 (Version None)
Quarter: 2011Q4

REPORT INFORMATION
  Report Type: 
  Country: None (occurrence: None)
  Receive Date: 20111026
  Receipt Date: 20111019
  Transmission Date: 20120403
  Serious: Yes (Hospitalization, Other)
  Sender: FDA-Public Use
  Company Number: 2011029334

PATIENT
  Sex: Female
  Weight: 122.4712 kg

DRUGS (18)
  1. ZEMAIRA [Suspect]
  2. LANTUS [Concomitant]
  3. CARDIZEM [Concomitant]
  4. VANCOMYCIN [Concomitant]
  5. HYDRALAZINE HCL [Concomitant]
  6. ZANTAC [Concomitant]
  7. HYDROCODONE-APAP (HYDROCODONE) [Concomitant]
  8. MIRALAX [Concomitant]
  9. ZEMAIRA [Suspect]
  10. DUONEB [Concomitant]
  11. ZEMAIRA [Suspect]
     Indication: ALPHA-1 ANTI-TRYPSIN DEFICIENCY
     Dosage: SEE IMAGE
     Route: 042
     Dates: start: 20100127
  12. ZEMAIRA [Suspect]
     Indication: ALPHA-1 ANTI-TRYPSIN DEFICIENCY
     Dosage: SEE IMAGE
     Route: 042
     Dates: start: 20110101
  13. ZEMAIRA [Suspect]
     Indication: ALPHA-1 ANTI-TRYPSIN DEFICIENCY
     Dosage: SEE IMAGE
     Route: 042
     Dates: start: 20111018, end: 20111018
  14. COREG [Concomitant]
  15. POTASSIUM CHLORIDE [Concomitant]
  16. LISINOPRIL-HCTZ (PRINZIDE /00977901/) [Concomitant]
  17. PROZAC [Concomitant]
  18. IBUPROFEN [Concomitant]

REACTIONS (2)
  - BLOOD DISORDER [None]
  - WOUND INFECTION [None]
